FAERS Safety Report 6639013-8 (Version None)
Quarter: 2010Q1

REPORT INFORMATION
  Report Type: 
  Country: None (occurrence: None)
  Receive Date: 20100317
  Receipt Date: 20100312
  Transmission Date: 20100710
  Serious: Yes (Congenital Anomaly)
  Sender: FDA-Public Use
  Company Number: DE-RB-004612-10

PATIENT

DRUGS (2)
  1. SUBUTEX [Suspect]
     Indication: DRUG EXPOSURE DURING PREGNANCY
     Dosage: DOSING DETAILS UNKNOWN
     Route: 064
  2. SUBOXONE [Suspect]
     Indication: DRUG EXPOSURE DURING PREGNANCY
     Dosage: DOSING DETAILS UNKNOWN
     Route: 064

REACTIONS (2)
  - DRUG EXPOSURE DURING PREGNANCY [None]
  - FOETAL MALFORMATION [None]
